FAERS Safety Report 25221163 (Version 3)
Quarter: 2025Q2

REPORT INFORMATION
  Report Type: Spontaneous
  Country: AU (occurrence: AU)
  Receive Date: 20250421
  Receipt Date: 20250523
  Transmission Date: 20250717
  Serious: Yes (Other)
  Sender: CSL BEHRING
  Company Number: AU-BEH-2025201851

PATIENT
  Age: 31 Year
  Sex: Male
  Weight: 96 kg

DRUGS (6)
  1. BERINERT [Suspect]
     Active Substance: HUMAN C1-ESTERASE INHIBITOR
     Indication: Hereditary angioedema with C1 esterase inhibitor deficiency
     Dosage: 3000 IU, QD (64000 IU EVERY 4 WEEKS)
     Route: 058
     Dates: start: 20250401, end: 20250408
  2. BERINERT [Suspect]
     Active Substance: HUMAN C1-ESTERASE INHIBITOR
     Indication: Prophylaxis
     Dosage: 16000 IU, QW
     Route: 058
  3. BERINERT [Suspect]
     Active Substance: HUMAN C1-ESTERASE INHIBITOR
     Dosage: 8000 IU, BIW
     Route: 065
  4. BERINERT [Suspect]
     Active Substance: HUMAN C1-ESTERASE INHIBITOR
     Route: 065
  5. ICATIBANT [Concomitant]
     Active Substance: ICATIBANT ACETATE
     Indication: Hereditary angioedema
     Route: 058
  6. ICATIBANT [Concomitant]
     Active Substance: ICATIBANT ACETATE
     Route: 058

REACTIONS (2)
  - Hereditary angioedema [Recovered/Resolved]
  - Off label use [Unknown]
